FAERS Safety Report 21983167 (Version 1)
Quarter: 2023Q1

REPORT INFORMATION
  Report Type: Spontaneous
  Country: JP (occurrence: JP)
  Receive Date: 20230213
  Receipt Date: 20230213
  Transmission Date: 20230417
  Serious: Yes (Life-Threatening)
  Sender: FDA-Public Use
  Company Number: JP-MSD-2302JPN000450J

PATIENT
  Age: 35 Year
  Sex: Female
  Weight: 58 kg

DRUGS (11)
  1. BRIDION [Suspect]
     Active Substance: SUGAMMADEX
     Indication: Neuromuscular blockade reversal
     Dosage: 200 MILLIGRAM, ONCE
     Route: 042
     Dates: start: 20220411, end: 20220411
  2. EPHEDRINE HYDROCHLORIDE [Concomitant]
     Active Substance: EPHEDRINE HYDROCHLORIDE
     Dosage: UNK
     Route: 042
     Dates: start: 20220411, end: 20220411
  3. CEFAZOLIN SODIUM [Concomitant]
     Active Substance: CEFAZOLIN SODIUM
     Dosage: UNK
     Route: 041
     Dates: start: 20220411, end: 20220411
  4. SEVOFLURANE [Concomitant]
     Active Substance: SEVOFLURANE
     Dosage: UNK
     Dates: start: 20220411, end: 20220411
  5. DIPRIVAN [Concomitant]
     Active Substance: PROPOFOL
     Dosage: UNK
     Route: 042
     Dates: start: 20220411, end: 20220411
  6. PHENYLEPHRINE HYDROCHLORIDE [Concomitant]
     Active Substance: PHENYLEPHRINE HYDROCHLORIDE
     Dosage: UNK
     Route: 042
     Dates: start: 20220411, end: 20220411
  7. VOLTAREN [Concomitant]
     Active Substance: DICLOFENAC SODIUM
     Dosage: UNK
     Route: 054
     Dates: start: 20220411, end: 20220411
  8. CALCIUM CHLORIDE ANHYDROUS\POTASSIUM CHLORIDE\SODIUM CHLORIDE\SODIUM L [Concomitant]
     Active Substance: CALCIUM CHLORIDE ANHYDROUS\POTASSIUM CHLORIDE\SODIUM CHLORIDE\SODIUM LACTATE
     Dosage: UNK
     Route: 042
     Dates: start: 20220411, end: 20220411
  9. ROCURONIUM BROMIDE [Concomitant]
     Active Substance: ROCURONIUM BROMIDE
     Dosage: UNK
     Route: 042
     Dates: start: 20220411, end: 20220411
  10. FENTANYL CITRATE [Concomitant]
     Active Substance: FENTANYL CITRATE
     Dosage: UNK
     Route: 042
     Dates: start: 20220411, end: 20220411
  11. REMIFENTANIL HYDROCHLORIDE [Concomitant]
     Active Substance: REMIFENTANIL HYDROCHLORIDE
     Dosage: UNK
     Route: 042
     Dates: start: 20220411, end: 20220411

REACTIONS (2)
  - Anaphylactic shock [Recovered/Resolved]
  - Product use issue [Unknown]

NARRATIVE: CASE EVENT DATE: 20220411
